FAERS Safety Report 24154121 (Version 1)
Quarter: 2024Q3

REPORT INFORMATION
  Report Type: Spontaneous
  Country: SE (occurrence: SE)
  Receive Date: 20240730
  Receipt Date: 20240730
  Transmission Date: 20241016
  Serious: Yes (Hospitalization)
  Sender: ANI
  Company Number: SE-ANIPHARMA-2024-SE-000018

PATIENT
  Age: 85 Year
  Sex: Female

DRUGS (19)
  1. CANDESARTAN [Suspect]
     Active Substance: CANDESARTAN
     Indication: Product used for unknown indication
  2. OXYCODONE [Concomitant]
     Active Substance: OXYCODONE
     Dosage: TABLET IF NEEDED 2 TIMES DAILY
     Dates: start: 20230929
  3. FOLIC ACID [Concomitant]
     Active Substance: FOLIC ACID
     Dosage: 2 TABLETS EVERY 7 DAYS
     Dates: start: 20220607
  4. CYANOCOBALAMIN [Concomitant]
     Active Substance: CYANOCOBALAMIN
     Dosage: 1 TABLET AT 8 AM
     Dates: start: 20231026
  5. JARDIANCE [Concomitant]
     Active Substance: EMPAGLIFLOZIN
     Dosage: 10 MG DAILY
     Dates: start: 20240516
  6. OMEPRAZOLE [Concomitant]
     Active Substance: OMEPRAZOLE
     Dosage: 20 MG DAILY
     Dates: start: 20200825
  7. LAXIMYL [Concomitant]
     Dosage: 1 DOSE AT 8
     Dates: start: 20210224
  8. METHOTREXATE [Concomitant]
     Active Substance: METHOTREXATE
     Dosage: 8 TABLETS EVERY WEEK.
     Dates: start: 20220927
  9. PREDNISOLONE [Concomitant]
     Active Substance: PREDNISOLONE
     Dosage: 5 MG DAILY
     Dates: start: 20231026
  10. METOPROLOL [Concomitant]
     Active Substance: METOPROLOL
     Dosage: 25 MG DAILY
     Dates: start: 20231026
  11. ACETAMINOPHEN [Concomitant]
     Active Substance: ACETAMINOPHEN
     Dosage: 1 G Q8H
     Dates: start: 20230927
  12. ENALAPRIL [Suspect]
     Active Substance: ENALAPRIL
     Dosage: 2.5 MG DAILY
     Route: 048
     Dates: start: 20240603, end: 20240619
  13. FURIX [Concomitant]
     Dosage: 1-2 TABLETTER VID BEHOV
     Dates: start: 20240411
  14. ELIQUIS [Concomitant]
     Active Substance: APIXABAN
     Dosage: 5 MG Q12H
     Dates: start: 20181116
  15. SULFASALAZINE [Concomitant]
     Active Substance: SULFASALAZINE
     Dates: start: 202111
  16. VAGIFEM [Concomitant]
     Active Substance: ESTRADIOL
     Dosage: ACCORDING TO A SPECIAL ORDER. 1 VAGINAL TABLET 1 GRAM DAILY FOR 2 WEEKS. THEN 1 VAGINAL TABLET 2 GIV
     Dates: start: 20200706
  17. UNSPECIFIED INGREDIENT [Concomitant]
     Active Substance: UNSPECIFIED INGREDIENT
     Dosage: 1 CHEWABLE TABLET AT 8
     Dates: start: 20231025
  18. PROLIA [Concomitant]
     Active Substance: DENOSUMAB
  19. UREA [Concomitant]
     Active Substance: UREA
     Dosage: 1 APPLICATION 2 GRAMS DAILY
     Dates: start: 20220209

REACTIONS (3)
  - Hallucination [Recovered/Resolved]
  - Confusional state [Recovered/Resolved]
  - Inappropriate antidiuretic hormone secretion [Recovered/Resolved]

NARRATIVE: CASE EVENT DATE: 20240619
